FAERS Safety Report 4732869-5 (Version None)
Quarter: 2005Q3

REPORT INFORMATION
  Report Type: 
  Country: None (occurrence: None)
  Receive Date: 20050803
  Receipt Date: 20050414
  Transmission Date: 20060218
  Serious: No
  Sender: FDA-Public Use
  Company Number: US-GLAXOSMITHKLINE-A0554211A

PATIENT
  Age: 71 Year
  Sex: Female

DRUGS (6)
  1. AVANDAMET [Suspect]
     Route: 048
     Dates: start: 20040101, end: 20050412
  2. ACTOS [Suspect]
     Dosage: 15MG PER DAY
     Route: 048
     Dates: start: 20050413
  3. ATACAND [Concomitant]
  4. VERAPAMIL [Concomitant]
  5. GLUCOTROL [Concomitant]
  6. ZETIA [Concomitant]

REACTIONS (1)
  - BLOOD GLUCOSE INCREASED [None]
